FAERS Safety Report 17952284 (Version 1)
Quarter: 2020Q2

REPORT INFORMATION
  Report Type: Spontaneous
  Country: IR (occurrence: IR)
  Receive Date: 20200626
  Receipt Date: 20200626
  Transmission Date: 20200714
  Serious: Yes (Other)
  Sender: FDA-Public Use
  Company Number: NVSC2020IR172056

PATIENT
  Age: 63 Year
  Sex: Female

DRUGS (8)
  1. CYCLOSPORINE. [Interacting]
     Active Substance: CYCLOSPORINE
     Dosage: 50 MG, BID
     Route: 065
  2. LOPINAVIR,RITONAVIR [Interacting]
     Active Substance: LOPINAVIR\RITONAVIR
     Indication: PRODUCT USED FOR UNKNOWN INDICATION
     Route: 065
  3. 8-HYDROXYQUINOLINE SULFATE [Interacting]
     Active Substance: OXYQUINOLINE SULFATE
     Indication: COVID-19
     Dosage: 400 MG, ONCE/SINGLE
     Route: 048
  4. CEFEPIME [Concomitant]
     Active Substance: CEFEPIME HYDROCHLORIDE
     Indication: COVID-19
     Dosage: 500 MG, BID
     Route: 048
  5. CYCLOSPORINE. [Suspect]
     Active Substance: CYCLOSPORINE
     Indication: PRODUCT USED FOR UNKNOWN INDICATION
     Dosage: 75 MG, BID
     Route: 065
  6. 8-HYDROXYQUINOLINE SULFATE [Interacting]
     Active Substance: OXYQUINOLINE SULFATE
     Dosage: 100 MG, TID
     Route: 048
  7. MYCOPHENOLATE MOFETIL. [Concomitant]
     Active Substance: MYCOPHENOLATE MOFETIL
     Indication: PRODUCT USED FOR UNKNOWN INDICATION
     Dosage: 500 MG, BID
     Route: 065
  8. OSELTAMIVIR [Concomitant]
     Active Substance: OSELTAMIVIR
     Indication: COVID-19
     Dosage: 75 MG, QD
     Route: 048

REACTIONS (1)
  - Drug interaction [Unknown]
